FAERS Safety Report 26146494 (Version 1)
Quarter: 2025Q4

REPORT INFORMATION
  Report Type: Spontaneous
  Country: BR (occurrence: BR)
  Receive Date: 20251211
  Receipt Date: 20251211
  Transmission Date: 20260117
  Serious: Yes (Death, Other)
  Sender: BIOMARIN
  Company Number: BR-SANOFI-02745105

PATIENT
  Age: 14 Year
  Sex: Female

DRUGS (1)
  1. LARONIDASE [Suspect]
     Active Substance: LARONIDASE
     Indication: Mucopolysaccharidosis I
     Dosage: UNK

REACTIONS (3)
  - Respiratory failure [Fatal]
  - Renal failure [Fatal]
  - Cerebral palsy [Fatal]
